FAERS Safety Report 10147387 (Version 1)
Quarter: 2014Q2

REPORT INFORMATION
  Report Type: Report from Study
  Country: DE (occurrence: JP)
  Receive Date: 20140501
  Receipt Date: 20140501
  Transmission Date: 20141212
  Serious: Yes (Hospitalization, Disabling, Other)
  Sender: FDA-Public Use
  Company Number: JP-FRI-1000066806

PATIENT
  Sex: Male
  Weight: 60 kg

DRUGS (11)
  1. MEMANTINE [Suspect]
     Indication: DEMENTIA ALZHEIMER^S TYPE
     Dosage: 5 MG
     Route: 048
     Dates: start: 20111219, end: 20111225
  2. MEMANTINE [Suspect]
     Dosage: 10 MG
     Route: 048
     Dates: start: 20111226, end: 20120101
  3. MEMANTINE [Suspect]
     Dosage: 15 MG
     Route: 048
     Dates: start: 20120102, end: 20120108
  4. MEMANTINE [Suspect]
     Dosage: 20 MG
     Route: 048
     Dates: start: 20120109, end: 20120116
  5. MEMANTINE [Suspect]
     Dosage: 15 MG
     Route: 048
     Dates: start: 20120213, end: 20120325
  6. MEMANTINE [Suspect]
     Dosage: 20 MG
     Route: 048
     Dates: start: 20120326
  7. ARICEPT D [Concomitant]
     Dates: start: 20110411, end: 20120730
  8. REMINYL [Concomitant]
     Route: 048
     Dates: start: 20110509, end: 20110731
  9. UNISIA HD [Concomitant]
     Dates: start: 20110704, end: 20111218
  10. MICAMLO AP [Concomitant]
     Dates: start: 20111219, end: 20130207
  11. GRAMALIL [Concomitant]
     Dates: start: 20111121, end: 20130110

REACTIONS (8)
  - Humerus fracture [Recovered/Resolved with Sequelae]
  - Fall [Recovered/Resolved with Sequelae]
  - Eating disorder [Unknown]
  - Weight decreased [Unknown]
  - Abulia [Unknown]
  - Renal impairment [Unknown]
  - Malnutrition [Unknown]
  - Cerebral infarction [Unknown]
